FAERS Safety Report 4376119-0 (Version None)
Quarter: 2004Q2

REPORT INFORMATION
  Report Type: 
  Country: None (occurrence: None)
  Receive Date: 20040609
  Receipt Date: 20040609
  Transmission Date: 20050107
  Serious: No
  Sender: FDA-Public Use
  Company Number: None

PATIENT
  Age: 56 Year
  Sex: Female
  Weight: 79.8331 kg

DRUGS (6)
  1. COMBIVENT [Suspect]
     Indication: CHRONIC OBSTRUCTIVE AIRWAYS DISEASE
     Dosage: 1-2 PUFFS Q4-6H
     Dates: start: 20040319, end: 20040405
  2. LOTREL [Concomitant]
  3. LEXAPRO [Concomitant]
  4. CALCIUM [Concomitant]
  5. LORATADINE [Concomitant]
  6. GLUCOPHAGE [Concomitant]

REACTIONS (2)
  - ABDOMINAL PAIN [None]
  - PAIN [None]
